FAERS Safety Report 5565437-6 (Version None)
Quarter: 2007Q4

REPORT INFORMATION
  Report Type: 
  Country: None (occurrence: None)
  Receive Date: 20071218
  Receipt Date: 20071206
  Transmission Date: 20080405
  Serious: Yes (Other)
  Sender: FDA-Public Use
  Company Number: GB-PFIZER INC-2007105353

PATIENT
  Age: 60 Year
  Sex: Female

DRUGS (4)
  1. CHAMPIX [Suspect]
     Indication: SMOKING CESSATION THERAPY
     Route: 048
     Dates: start: 20070508, end: 20071101
  2. DOCUSATE [Concomitant]
  3. DULOXETINE [Concomitant]
  4. ACETAMINOPHEN [Concomitant]
     Route: 048

REACTIONS (3)
  - HYPERHIDROSIS [None]
  - PANIC DISORDER [None]
  - TREMOR [None]
